FAERS Safety Report 5258965-4 (Version None)
Quarter: 2007Q1

REPORT INFORMATION
  Report Type: 
  Country: None (occurrence: None)
  Receive Date: 20070305
  Receipt Date: 20070220
  Transmission Date: 20070707
  Serious: Yes (Life-Threatening, Hospitalization)
  Sender: FDA-Public Use
  Company Number: 233940

PATIENT
  Age: 17 Month
  Sex: Male
  Weight: 9.2 kg

DRUGS (7)
  1. NUTROPIN AQ [Suspect]
     Indication: CONGENITAL CYSTIC KIDNEY DISEASE
     Dosage: 0.44 MG, 7/WEEK, SUBCUTANEOUS
     Route: 058
     Dates: start: 20061019, end: 20061212
  2. CACO3 (CALCIUM CARBONATE) [Concomitant]
  3. EPOGEN [Concomitant]
  4. FERINSOL (FERROUS SULFATE) [Concomitant]
  5. LEVOTHYROXINE SODIUM [Concomitant]
  6. NA PHOSPHATE (SODIUM PHOSPHATE, DIBASIC) [Concomitant]
  7. REGLAN [Concomitant]

REACTIONS (6)
  - BRAIN OEDEMA [None]
  - CONVULSION [None]
  - HYPERTENSION [None]
  - INTRACRANIAL PRESSURE INCREASED [None]
  - VIRAL INFECTION [None]
  - VOMITING [None]
